FAERS Safety Report 8339461-4 (Version None)
Quarter: 2012Q2

REPORT INFORMATION
  Report Type: 
  Country: None (occurrence: None)
  Receive Date: 20120507
  Receipt Date: 20120424
  Transmission Date: 20120825
  Serious: Yes (Hospitalization)
  Sender: FDA-Public Use
  Company Number: PHHY2012CH035128

PATIENT
  Age: 63 Year
  Sex: Female

DRUGS (11)
  1. RAMIPRIL [Suspect]
     Dosage: 10 MG, UNK
     Route: 048
     Dates: end: 20120213
  2. RASILEZ [Suspect]
     Dosage: 150 MG, UNK
     Route: 048
  3. GLUCOPHAGE [Concomitant]
     Dosage: 1000 MG, BID
     Route: 048
  4. DIAMICRON [Concomitant]
     Route: 048
  5. MAGNESIUM DIASPORAL [Concomitant]
  6. ASPIRIN [Suspect]
     Dosage: 100 MG, UNK
     Route: 048
     Dates: end: 20120213
  7. LERCANIDIPINE [Concomitant]
     Dosage: 10 MG, QD
     Route: 048
  8. PLAVIX [Concomitant]
  9. METOPROLOL TARTRATE AND HYDROCHLOROTHIAZIDE [Concomitant]
     Dosage: 50 MG, BID
     Route: 048
  10. TORSEMIDE [Concomitant]
     Dosage: 20 MG, UNK
     Route: 048
  11. LANTUS [Concomitant]
     Route: 058

REACTIONS (6)
  - HYPERKALAEMIA [None]
  - RENAL FAILURE ACUTE [None]
  - GASTRIC ULCER [None]
  - ANAEMIA [None]
  - ASTHENIA [None]
  - GASTROINTESTINAL HAEMORRHAGE [None]
